FAERS Safety Report 4886779-3 (Version None)
Quarter: 2006Q1

REPORT INFORMATION
  Report Type: 
  Country: None (occurrence: None)
  Receive Date: 20060119
  Receipt Date: 20060119
  Transmission Date: 20060701
  Serious: No
  Sender: FDA-Public Use
  Company Number: None

PATIENT
  Age: 65 Year
  Sex: Male
  Weight: 80.7403 kg

DRUGS (4)
  1. EXCEDRIN (MIGRAINE) [Suspect]
     Indication: SHOULDER PAIN
     Dosage: 1-2   PRN   PO
     Route: 048
     Dates: start: 20051201, end: 20060113
  2. VARDENAFIL [Concomitant]
  3. FINASTERIDE [Concomitant]
  4. DOXAZOSIN [Concomitant]

REACTIONS (1)
  - CHROMATURIA [None]
